FAERS Safety Report 10240837 (Version 1)
Quarter: 2014Q2

REPORT INFORMATION
  Report Type: Spontaneous
  Country: JP (occurrence: JP)
  Receive Date: 20140617
  Receipt Date: 20140617
  Transmission Date: 20141212
  Serious: Yes (Hospitalization)
  Sender: FDA-Public Use
  Company Number: JP-ROCHE-1419881

PATIENT
  Age: 73 Year
  Sex: Male

DRUGS (6)
  1. XOLAIR [Suspect]
     Indication: ASTHMA
     Route: 058
     Dates: start: 20140523, end: 20140527
  2. ADOAIR [Concomitant]
  3. SINGULAIR [Concomitant]
  4. MUCODYNE [Concomitant]
  5. MEDICON (DEXTROMETHORPHAN HYDROBROMIDE) [Concomitant]
  6. CLARITH [Concomitant]

REACTIONS (2)
  - Pneumonia mycoplasmal [Recovering/Resolving]
  - Organising pneumonia [Unknown]
